FAERS Safety Report 4292112-0 (Version None)
Quarter: 2004Q1

REPORT INFORMATION
  Report Type: 
  Country: None (occurrence: None)
  Receive Date: 20040210
  Receipt Date: 20040210
  Transmission Date: 20041129
  Serious: Yes (Death, Other)
  Sender: FDA-Public Use
  Company Number: None

PATIENT
  Sex: Male
  Weight: 102.0593 kg

DRUGS (6)
  1. PEGINTERFERON 180 MCG ROCHE LABORATORIES [Suspect]
     Indication: HEPATITIS C
     Dosage: 180 MCG ONCE WEEKL SQ
     Route: 058
     Dates: start: 20030723, end: 20031015
  2. DIVALPROEX SODIUM [Concomitant]
  3. FLUOXETINE HCL [Concomitant]
  4. TEMAZEPAM [Concomitant]
  5. RIBAVIRIN [Concomitant]
  6. PROPRANOLOL [Concomitant]

REACTIONS (1)
  - DEATH [None]
